FAERS Safety Report 6184117-X (Version None)
Quarter: 2009Q2

REPORT INFORMATION
  Report Type: 
  Country: None (occurrence: None)
  Receive Date: 20090508
  Receipt Date: 20090428
  Transmission Date: 20091009
  Serious: Yes (Hospitalization, Other)
  Sender: FDA-Public Use
  Company Number: PHHY2009FR16173

PATIENT
  Age: 69 Year
  Sex: Male

DRUGS (6)
  1. TAREG [Suspect]
     Indication: CARDIAC FAILURE
     Dosage: 80 MG, BID
     Route: 048
     Dates: end: 20090319
  2. ALDACTONE [Suspect]
     Indication: CARDIAC FAILURE
     Dosage: 25 MG, QD
     Route: 048
     Dates: end: 20090319
  3. DIGOXIN [Concomitant]
     Dosage: 0.25 MG, UNK
     Route: 048
  4. LASIX [Concomitant]
     Dosage: 40 MG, UNK
     Route: 048
  5. CARDENSIEL [Concomitant]
     Dosage: 2.5 MG, UNK
     Route: 048
  6. RIFADIN [Concomitant]

REACTIONS (5)
  - BLOOD CREATININE INCREASED [None]
  - BLOOD UREA INCREASED [None]
  - ENDOCARDITIS STAPHYLOCOCCAL [None]
  - IMPLANTABLE DEFIBRILLATOR REMOVAL [None]
  - RENAL FAILURE ACUTE [None]
